FAERS Safety Report 5661311-5 (Version None)
Quarter: 2008Q1

REPORT INFORMATION
  Report Type: 
  Country: None (occurrence: None)
  Receive Date: 20080312
  Receipt Date: 20080310
  Transmission Date: 20080703
  Serious: Yes (Hospitalization)
  Sender: FDA-Public Use
  Company Number: DE-WYE-G01220608

PATIENT
  Sex: Female

DRUGS (2)
  1. TREVILOR [Suspect]
     Dosage: 1 TABLET
     Route: 048
     Dates: start: 20080309, end: 20080309
  2. ETHANOL [Suspect]
     Dosage: OVERDOSE AMOUNT UNKNOWN
     Route: 048
     Dates: start: 20080309, end: 20080309

REACTIONS (4)
  - DYSARTHRIA [None]
  - FEELING DRUNK [None]
  - INTENTIONAL OVERDOSE [None]
  - SUICIDE ATTEMPT [None]
